FAERS Safety Report 14999784 (Version 1)
Quarter: 2018Q2

REPORT INFORMATION
  Report Type: Spontaneous
  Country: US (occurrence: US)
  Receive Date: 20180523
  Receipt Date: 20180523
  Transmission Date: 20180711
  Serious: Yes (Hospitalization)
  Sender: FDA-Public Use
  Company Number: None

PATIENT
  Age: 56 Year
  Sex: Male
  Weight: 89.1 kg

DRUGS (4)
  1. ZEAL VITAMINS DRINK [Concomitant]
  2. EFFEXOR [Suspect]
     Active Substance: VENLAFAXINE HYDROCHLORIDE
     Indication: ROAD TRAFFIC ACCIDENT
     Dosage: ?          QUANTITY:1 CAPSULE(S);?
     Route: 048
  3. EFFEXOR [Suspect]
     Active Substance: VENLAFAXINE HYDROCHLORIDE
     Indication: POST-TRAUMATIC STRESS DISORDER
     Dosage: ?          QUANTITY:1 CAPSULE(S);?
     Route: 048
  4. SEIZURE MEDICINE [Concomitant]

REACTIONS (3)
  - Withdrawal syndrome [None]
  - Transient ischaemic attack [None]
  - Seizure [None]

NARRATIVE: CASE EVENT DATE: 20180522
